FAERS Safety Report 24978955 (Version 1)
Quarter: 2025Q1

REPORT INFORMATION
  Report Type: Report from Study
  Country: CN (occurrence: CN)
  Receive Date: 20250218
  Receipt Date: 20250218
  Transmission Date: 20250409
  Serious: Yes (Death)
  Sender: ROCHE
  Company Number: CN-ROCHE-10000208518

PATIENT
  Age: 77 Year
  Sex: Female

DRUGS (1)
  1. GLOFITAMAB [Suspect]
     Active Substance: GLOFITAMAB
     Indication: Diffuse large B-cell lymphoma
     Dosage: 10MG (10ML) VIAL
     Route: 040
     Dates: start: 20241112

REACTIONS (1)
  - Disease progression [Fatal]
